FAERS Safety Report 13631819 (Version 2)
Quarter: 2017Q2

REPORT INFORMATION
  Report Type: Report from Study
  Country: US (occurrence: US)
  Receive Date: 20170608
  Receipt Date: 20170630
  Transmission Date: 20170830
  Serious: Yes (Hospitalization)
  Sender: FDA-Public Use
  Company Number: US-ACTELION-A-NJ2016-133002

PATIENT
  Age: 33 Year
  Sex: Female
  Weight: 49.89 kg

DRUGS (5)
  1. VELETRI [Suspect]
     Active Substance: EPOPROSTENOL
     Dosage: 19 NG/KG, PER MIN
     Route: 042
  2. LETAIRIS [Concomitant]
     Active Substance: AMBRISENTAN
  3. COUMADIN [Concomitant]
     Active Substance: WARFARIN SODIUM
  4. VELETRI [Suspect]
     Active Substance: EPOPROSTENOL
     Indication: PULMONARY ARTERIAL HYPERTENSION
     Dosage: 22 NG/KG, PER MIN
     Route: 042
     Dates: start: 20160108
  5. SILDENAFIL. [Concomitant]
     Active Substance: SILDENAFIL

REACTIONS (22)
  - Bacterial infection [Recovered/Resolved]
  - Fatigue [Recovered/Resolved]
  - Catheter site infection [Recovered/Resolved]
  - Catheter site erythema [Recovered/Resolved]
  - Catheter site swelling [Recovered/Resolved]
  - Catheter management [Unknown]
  - Catheter site haemorrhage [Unknown]
  - Fatigue [Unknown]
  - Catheter site pruritus [Unknown]
  - Pain in jaw [Unknown]
  - Bacteraemia [Unknown]
  - Catheter site infection [Recovered/Resolved]
  - Chills [Recovered/Resolved]
  - International normalised ratio increased [Unknown]
  - Flushing [Unknown]
  - Catheter site pain [Unknown]
  - Device breakage [Unknown]
  - Device related infection [Unknown]
  - Culture wound positive [Recovered/Resolved]
  - Catheter placement [Unknown]
  - Nasal dryness [Unknown]
  - Nasal congestion [Unknown]

NARRATIVE: CASE EVENT DATE: 201606
